FAERS Safety Report 7820082-4 (Version None)
Quarter: 2011Q4

REPORT INFORMATION
  Report Type: 
  Country: None (occurrence: None)
  Receive Date: 20111018
  Receipt Date: 20111013
  Transmission Date: 20120403
  Serious: Yes (Other)
  Sender: FDA-Public Use
  Company Number: JP-PFIZER INC-2011245414

PATIENT
  Age: 64 Year
  Sex: Male

DRUGS (8)
  1. TRIAZOLAM [Concomitant]
     Dosage: 0.25 MG DAILY
     Route: 048
  2. IRRIBOW [Concomitant]
     Dosage: 5 MICROG DAILY
     Route: 048
  3. UROLEAP [Concomitant]
     Dosage: 50 MG DAILY
     Route: 048
  4. NIFELANTERN CR [Concomitant]
     Dosage: 20 MG DAILY
     Route: 048
  5. VARENICLINE TARTRATE [Suspect]
     Indication: SMOKING CESSATION THERAPY
     Dosage: UNK
     Route: 048
     Dates: start: 20110621, end: 20110909
  6. THIWAN [Concomitant]
     Dosage: 10 MG DAILY
     Route: 048
  7. GASDOCK [Concomitant]
     Dosage: 10 MG DAILY
     Route: 048
  8. PRODEC [Concomitant]
     Dosage: 10 MG DAILY
     Route: 048

REACTIONS (3)
  - ALTERED STATE OF CONSCIOUSNESS [None]
  - HEAT ILLNESS [None]
  - ROAD TRAFFIC ACCIDENT [None]
